FAERS Safety Report 4799916-6 (Version None)
Quarter: 2005Q4

REPORT INFORMATION
  Report Type: 
  Country: None (occurrence: None)
  Receive Date: 20051012
  Receipt Date: 20051012
  Transmission Date: 20060501
  Serious: Yes (Hospitalization, Other)
  Sender: FDA-Public Use
  Company Number: None

PATIENT
  Sex: Female
  Weight: 82 kg

DRUGS (2)
  1. CYCLOPHOSPHAMIDE [Suspect]
     Indication: BREAST CANCER
     Dosage: SEE IMAGE
     Dates: start: 20050127
  2. DOXORUBICIN HCL [Suspect]
     Dosage: SEE IMAGE
     Dates: start: 20050127

REACTIONS (6)
  - ALCOHOL USE [None]
  - INTENTIONAL DRUG MISUSE [None]
  - LOSS OF CONSCIOUSNESS [None]
  - MARITAL PROBLEM [None]
  - OVERDOSE [None]
  - SUICIDE ATTEMPT [None]
